FAERS Safety Report 8363278-8 (Version None)
Quarter: 2012Q2

REPORT INFORMATION
  Report Type: 
  Country: None (occurrence: None)
  Receive Date: 20120516
  Receipt Date: 20111207
  Transmission Date: 20120825
  Serious: No
  Sender: FDA-Public Use
  Company Number: US-ALEXION-A201101845

PATIENT
  Sex: Female

DRUGS (3)
  1. SOLIRIS [Suspect]
     Indication: PAROXYSMAL NOCTURNAL HAEMOGLOBINURIA
     Dosage: UNK
     Route: 042
  2. BENADRYL [Concomitant]
     Indication: PROPHYLAXIS
  3. ATIVAN [Concomitant]
     Indication: PROPHYLAXIS

REACTIONS (3)
  - NAUSEA [None]
  - NECK PAIN [None]
  - HEADACHE [None]
